FAERS Safety Report 5283052-9 (Version None)
Quarter: 2007Q2

REPORT INFORMATION
  Report Type: 
  Country: None (occurrence: None)
  Receive Date: 20070327
  Receipt Date: 20070314
  Transmission Date: 20071010
  Serious: Yes (Hospitalization)
  Sender: FDA-Public Use
  Company Number: 20070082 /

PATIENT
  Age: 74 Year
  Sex: Male

DRUGS (2)
  1. VENOFER [Suspect]
     Indication: IRON DEFICIENCY
     Dosage: 200 MG X 1, 5 TIMES
  2. VENOFER [Suspect]
     Dosage: 100 MG X 1 PARENTERAL
     Route: 051

REACTIONS (1)
  - RECTAL HAEMORRHAGE [None]
